FAERS Safety Report 14929760 (Version 2)
Quarter: 2018Q2

REPORT INFORMATION
  Report Type: Spontaneous
  Country: US (occurrence: US)
  Receive Date: 20180523
  Receipt Date: 20180615
  Transmission Date: 20180711
  Serious: Yes (Other)
  Sender: FDA-Public Use
  Company Number: US-ASTRAZENECA-2018SE65713

PATIENT
  Age: 77 Year
  Sex: Female

DRUGS (19)
  1. LISINOPRIL. [Suspect]
     Active Substance: LISINOPRIL
     Route: 048
  2. FASLODEX [Suspect]
     Active Substance: FULVESTRANT
     Indication: BREAST CANCER METASTATIC
     Dosage: 500.0MG UNKNOWN
     Route: 030
  3. VERZENIO [Suspect]
     Active Substance: ABEMACICLIB
     Route: 065
     Dates: start: 20170108
  4. STARLIX [Concomitant]
     Active Substance: NATEGLINIDE
     Route: 065
     Dates: start: 201710
  5. ZINC. [Concomitant]
     Active Substance: ZINC
     Route: 065
     Dates: start: 201710
  6. VITAMIN C [Concomitant]
     Active Substance: ASCORBIC ACID
     Route: 065
     Dates: start: 201710
  7. BIOTIN [Concomitant]
     Active Substance: BIOTIN
     Route: 065
     Dates: start: 201710
  8. PALBOCICLIB [Suspect]
     Active Substance: PALBOCICLIB
     Route: 048
     Dates: start: 201608
  9. XGEVA [Suspect]
     Active Substance: DENOSUMAB
     Route: 065
     Dates: start: 201411
  10. REMERON [Suspect]
     Active Substance: MIRTAZAPINE
     Route: 065
     Dates: start: 201710
  11. ASPIRIN. [Concomitant]
     Active Substance: ASPIRIN
     Route: 065
     Dates: start: 201710
  12. AROMASIN [Suspect]
     Active Substance: EXEMESTANE
     Route: 065
     Dates: start: 20170830
  13. AFINITOR [Suspect]
     Active Substance: EVEROLIMUS
     Route: 065
     Dates: start: 20171011
  14. ARIMIDEX [Suspect]
     Active Substance: ANASTROZOLE
     Indication: BREAST CANCER
     Route: 048
     Dates: start: 20160822
  15. FEMARA [Suspect]
     Active Substance: LETROZOLE
     Route: 065
     Dates: start: 201608
  16. FISH OIL [Concomitant]
     Active Substance: FISH OIL
     Route: 065
     Dates: start: 201710
  17. VITAMIN D3 [Concomitant]
     Active Substance: CHOLECALCIFEROL
     Route: 065
     Dates: start: 201710
  18. FASLODEX [Suspect]
     Active Substance: FULVESTRANT
     Indication: BREAST CANCER METASTATIC
     Dosage: 250.0MG UNKNOWN
     Route: 030
     Dates: start: 201411
  19. FOLIC ACID. [Concomitant]
     Active Substance: FOLIC ACID
     Route: 065
     Dates: start: 201710

REACTIONS (38)
  - Vision blurred [Recovered/Resolved]
  - Constipation [Unknown]
  - Spinal compression fracture [Unknown]
  - Pulmonary fibrosis [Unknown]
  - Contusion [Unknown]
  - Drug ineffective [Unknown]
  - Dizziness [Recovered/Resolved]
  - Nausea [Recovered/Resolved]
  - Rash [Recovered/Resolved]
  - Recurrent cancer [Unknown]
  - Breast cellulitis [Unknown]
  - Hypertension [Unknown]
  - Tumour marker increased [Unknown]
  - Metastases to lymph nodes [Unknown]
  - Hyperglycaemia [Unknown]
  - Malignant neoplasm progression [Unknown]
  - Pruritus [Recovered/Resolved]
  - Decreased appetite [Unknown]
  - Hypercalcaemia [Unknown]
  - Atelectasis [Unknown]
  - Back pain [Unknown]
  - Intertrigo [Unknown]
  - Joint swelling [Unknown]
  - Muscle spasms [Not Recovered/Not Resolved]
  - Metastases to bone [Unknown]
  - Anaemia [Unknown]
  - Mucosal inflammation [Unknown]
  - Pain in extremity [Recovered/Resolved]
  - Fatigue [Unknown]
  - Metastases to chest wall [Unknown]
  - Arthralgia [Unknown]
  - Peripheral swelling [Unknown]
  - Pain [Unknown]
  - Hypogeusia [Unknown]
  - Oedema peripheral [Unknown]
  - Road traffic accident [Unknown]
  - Breast cancer metastatic [Unknown]
  - Pathological fracture [Unknown]

NARRATIVE: CASE EVENT DATE: 201307
